FAERS Safety Report 4686176-X (Version None)
Quarter: 2005Q2

REPORT INFORMATION
  Report Type: 
  Country: None (occurrence: None)
  Receive Date: 20050609
  Receipt Date: 20050308
  Transmission Date: 20051028
  Serious: Yes (Hospitalization, Other)
  Sender: FDA-Public Use
  Company Number: GB-BOEHRINGER INGELHEIM PHARMACEUTICALS, INC.-2005-UK-00393UK

PATIENT
  Age: 61 Year
  Sex: Male

DRUGS (5)
  1. MICARDIS TABLETS (EU/1/98/090/001-012) [Suspect]
     Dates: start: 20010815
  2. SIMVASTATIN [Suspect]
  3. SALMETEROL [Suspect]
  4. BECLOMETHASONE DIPROPIONATE [Suspect]
  5. SALBUTAMOL [Suspect]

REACTIONS (1)
  - ACUTE MYOCARDIAL INFARCTION [None]
